FAERS Safety Report 6904301-4 (Version None)
Quarter: 2010Q3

REPORT INFORMATION
  Report Type: 
  Country: None (occurrence: None)
  Receive Date: 20100804
  Receipt Date: 20090420
  Transmission Date: 20110219
  Serious: No
  Sender: FDA-Public Use
  Company Number: US-PFIZER INC-2009201925

PATIENT
  Age: 45 Year
  Sex: Female
  Weight: 117.9 kg

DRUGS (8)
  1. LYRICA [Suspect]
     Indication: PAIN
     Dosage: 50 MG, 1X/DAY
     Dates: start: 20090414
  2. IMIPRAMINE [Concomitant]
     Dosage: UNK
  3. ALPRAZOLAM [Concomitant]
     Dosage: UNK
  4. CARISOPRODOL [Concomitant]
     Dosage: UNK
  5. HYDROCODONE BITARTRATE AND IBUPROFEN [Concomitant]
     Dosage: UNK
  6. LASIX [Concomitant]
     Dosage: UNK
  7. POTASSIUM [Concomitant]
     Dosage: UNK
  8. CADUET [Concomitant]
     Dosage: UNK

REACTIONS (4)
  - BRADYPHRENIA [None]
  - DIZZINESS [None]
  - DRY MOUTH [None]
  - VISUAL IMPAIRMENT [None]
